FAERS Safety Report 4602374-5 (Version None)
Quarter: 2005Q1

REPORT INFORMATION
  Report Type: 
  Country: None (occurrence: None)
  Receive Date: 20050307
  Receipt Date: 20050222
  Transmission Date: 20050727
  Serious: Yes (Hospitalization)
  Sender: FDA-Public Use
  Company Number: 2005-BP-00955BP

PATIENT
  Age: 82 Year
  Sex: Female

DRUGS (1)
  1. COMBIVENT [Suspect]
     Dosage: 18MCG/103MCG (2 PUFFS Q4-6 PRN), IH
     Route: 055
     Dates: start: 20020801

REACTIONS (2)
  - PHARMACEUTICAL PRODUCT COMPLAINT [None]
  - TRANSIENT ISCHAEMIC ATTACK [None]
